FAERS Safety Report 5207955-6 (Version None)
Quarter: 2007Q1

REPORT INFORMATION
  Report Type: 
  Country: None (occurrence: None)
  Receive Date: 20070115
  Receipt Date: 20070105
  Transmission Date: 20070707
  Serious: Yes (Death)
  Sender: FDA-Public Use
  Company Number: DE-ELI_LILLY_AND_COMPANY-DE200701001438

PATIENT
  Age: 52 Year
  Sex: Male
  Weight: 60 kg

DRUGS (1)
  1. ZYPREXA [Suspect]
     Indication: HUNTINGTON'S CHOREA
     Dosage: 10 MG, DAILY (1/D)
     Route: 048
     Dates: start: 20061107, end: 20061117

REACTIONS (6)
  - BONE MARROW FAILURE [None]
  - HAEMATURIA [None]
  - HAEMOGLOBIN DECREASED [None]
  - LEUKOPENIA [None]
  - MELAENA [None]
  - THROMBOCYTOPENIA [None]
